FAERS Safety Report 14827037 (Version 1)
Quarter: 2018Q2

REPORT INFORMATION
  Report Type: Spontaneous
  Country: CA (occurrence: None)
  Receive Date: 20180427
  Receipt Date: 20180427
  Transmission Date: 20180711
  Serious: Yes (Other)
  Sender: FDA-Public Use
  Company Number: 2018-067696

PATIENT
  Age: 7 Month
  Sex: Female

DRUGS (1)
  1. HYDRASENSE ULTRA GENTLE NASAL MIST (SODIUM CHLORIDE) NASAL SPRAY, SOLUTION [Suspect]
     Active Substance: SEA WATER

REACTIONS (6)
  - Device breakage [None]
  - Erythema [None]
  - Cough [None]
  - Product quality issue [None]
  - Incorrect dose administered by device [None]
  - Choking [None]
